FAERS Safety Report 5078397-1 (Version None)
Quarter: 2006Q3

REPORT INFORMATION
  Report Type: 
  Country: None (occurrence: None)
  Receive Date: 20060811
  Receipt Date: 20060801
  Transmission Date: 20061208
  Serious: Yes (Life-Threatening)
  Sender: FDA-Public Use
  Company Number: ES-ABBOTT-06P-144-0339338-00

PATIENT
  Age: 76 Year
  Sex: Female

DRUGS (1)
  1. AKINETON [Suspect]
     Indication: DRUG USE FOR UNKNOWN INDICATION
     Route: 030
     Dates: start: 20060620, end: 20060620

REACTIONS (2)
  - CONVULSION [None]
  - URINARY RETENTION [None]
